FAERS Safety Report 8269455-9 (Version None)
Quarter: 2012Q2

REPORT INFORMATION
  Report Type: 
  Country: None (occurrence: None)
  Receive Date: 20120409
  Receipt Date: 20120329
  Transmission Date: 20120825
  Serious: Yes (Other)
  Sender: FDA-Public Use
  Company Number: US-BAYER-2012-031012

PATIENT
  Sex: Female

DRUGS (2)
  1. MIRENA [Suspect]
     Indication: CONTRACEPTION
     Dosage: 20 MCG/24HR, CONT
     Route: 015
     Dates: start: 20110401, end: 20120227
  2. MIRENA [Suspect]
     Indication: MENORRHAGIA

REACTIONS (5)
  - MASS [None]
  - DEVICE DISLOCATION [None]
  - DEVICE ISSUE [None]
  - OVARIAN CYST [None]
  - VAGINAL HAEMORRHAGE [None]
